FAERS Safety Report 10713452 (Version 4)
Quarter: 2015Q3

REPORT INFORMATION
  Report Type: Report from Study
  Country: US (occurrence: US)
  Receive Date: 20150115
  Receipt Date: 20150814
  Transmission Date: 20151125
  Serious: Yes (Other)
  Sender: FDA-Public Use
  Company Number: US-SA-2014SA158895

PATIENT
  Age: 54 Year
  Sex: Female

DRUGS (7)
  1. AUBAGIO [Suspect]
     Active Substance: TERIFLUNOMIDE
     Indication: MULTIPLE SCLEROSIS
     Route: 048
     Dates: start: 20141112
  2. AUBAGIO [Suspect]
     Active Substance: TERIFLUNOMIDE
     Indication: MULTIPLE SCLEROSIS
     Route: 048
     Dates: start: 20141111, end: 20141111
  3. ADVIL [Concomitant]
     Active Substance: IBUPROFEN
  4. VITAMIN D3 [Concomitant]
     Active Substance: CHOLECALCIFEROL
  5. CELEXA [Concomitant]
     Active Substance: CITALOPRAM HYDROBROMIDE
     Dosage: IN THE MORNING
  6. LYRICA [Concomitant]
     Active Substance: PREGABALIN
  7. OMEGA 3 [Concomitant]
     Active Substance: OMEGA-3 FATTY ACIDS

REACTIONS (39)
  - Head discomfort [Unknown]
  - Memory impairment [Unknown]
  - Pain in extremity [Not Recovered/Not Resolved]
  - Vision blurred [Unknown]
  - Heart rate increased [Unknown]
  - Feeling abnormal [Unknown]
  - Asthenia [Unknown]
  - Crying [Unknown]
  - Blood triglycerides increased [Unknown]
  - Blood cholesterol increased [Unknown]
  - Headache [Unknown]
  - Multiple sclerosis relapse [Unknown]
  - Inflammation [Unknown]
  - Cough [Unknown]
  - Gait disturbance [Unknown]
  - Tachycardia [Unknown]
  - Stress [Unknown]
  - Muscular weakness [Not Recovered/Not Resolved]
  - Tinnitus [Unknown]
  - Influenza [Unknown]
  - Productive cough [Unknown]
  - Vomiting [Unknown]
  - Hunger [Unknown]
  - Back disorder [Unknown]
  - Pain [Unknown]
  - Swelling [Unknown]
  - Palpitations [Unknown]
  - Chikungunya virus infection [Unknown]
  - Hemiparesis [Unknown]
  - Dysstasia [Unknown]
  - Balance disorder [Unknown]
  - Discomfort [Unknown]
  - Fatigue [Unknown]
  - Hypoaesthesia [Unknown]
  - Insomnia [Unknown]
  - Deafness [Unknown]
  - Carpal tunnel syndrome [Unknown]
  - Fatigue [Unknown]
  - Laboratory test abnormal [Unknown]

NARRATIVE: CASE EVENT DATE: 20141113
